FAERS Safety Report 5152538-X (Version None)
Quarter: 2006Q4

REPORT INFORMATION
  Report Type: 
  Country: None (occurrence: None)
  Receive Date: 20061109
  Receipt Date: 20061013
  Transmission Date: 20070319
  Serious: Yes (Other)
  Sender: FDA-Public Use
  Company Number: 2006SP002020

PATIENT
  Age: 65 Year
  Sex: Female
  Weight: 51 kg

DRUGS (9)
  1. PEG-INTRON [Suspect]
     Indication: HEPATITIS C
     Dosage: 80 MCG; QW; SC
     Route: 058
     Dates: start: 20060728
  2. REBETOL [Suspect]
     Indication: HEPATITIS C
     Dosage: 600 MG; QD; PO
     Route: 048
     Dates: start: 20060728
  3. NORVASC (CON) [Concomitant]
  4. NU-LOTAN (CON) [Concomitant]
  5. URSO (CON) [Concomitant]
  6. SELBEX (CON) [Concomitant]
  7. BENET (CON) [Concomitant]
  8. PLATIBIT (CON) [Concomitant]
  9. NEUTROPIN (CON) [Concomitant]

REACTIONS (3)
  - DELIRIUM [None]
  - HALLUCINATION [None]
  - INCOHERENT [None]
